FAERS Safety Report 10051509 (Version 2)
Quarter: 2014Q3

REPORT INFORMATION
  Report Type: Spontaneous
  Country: US (occurrence: None)
  Receive Date: 20140328
  Receipt Date: 20140702
  Transmission Date: 20150326
  Serious: Yes (Other)
  Sender: FDA-Public Use
  Company Number: 2014-US-003417

PATIENT
  Age: 43 Year
  Sex: Female

DRUGS (15)
  1. TIZANIDINE (TIZANIDINE HYDROCHLORIDE) [Concomitant]
  2. ADDERALL (AMFETAMINE ASPARTATE, AMEFTEMINE SULFATE, DEXAMEFETAMINE SACCHARATE, DEXAMFETAMINE SULFATE) [Concomitant]
  3. FLUDROCORTISONE (FLUDROCORTISONE ACETATE) [Concomitant]
  4. LYRICA [Suspect]
     Active Substance: PREGABALIN
     Indication: PRODUCT USED FOR UNKNOWN INDICATION
  5. MAXALT (RIZATRIPTAN BENZOATE) [Concomitant]
     Active Substance: RIZATRIPTAN BENZOATE
  6. EXELON [Concomitant]
     Active Substance: RIVASTIGMINE TARTRATE
  7. LEVOTHYROXINE (LEVOTHYROXINE SODIUM) [Concomitant]
  8. VITAMIN SUPPLEMENTS (VITAMINS NOS) [Concomitant]
  9. XYREM [Suspect]
     Active Substance: SODIUM OXYBATE
     Indication: NARCOLEPSY
     Dosage: 3 G, BID, ORAL
     Route: 048
     Dates: start: 200504, end: 2005
  10. XYREM [Suspect]
     Active Substance: SODIUM OXYBATE
     Indication: SOMNOLENCE
     Dosage: 3 G, BID, ORAL
     Route: 048
     Dates: start: 200504, end: 2005
  11. PANTOPRAZOLE (PANTOPRAZOLE) [Concomitant]
     Active Substance: PANTOPRAZOLE SODIUM
  12. ACYCLOVIR (ACYCLOVIR) [Concomitant]
     Active Substance: ACYCLOVIR
  13. KEPPRA [Concomitant]
     Active Substance: LEVETIRACETAM
  14. LIOTHYRONINE (LIOTHYRONINE) [Concomitant]
  15. MONTELUKAST [Concomitant]
     Active Substance: MONTELUKAST SODIUM

REACTIONS (9)
  - Multiple system atrophy [None]
  - Condition aggravated [None]
  - Crying [None]
  - Fibromyalgia [None]
  - Headache [None]
  - Rebound effect [None]
  - Insomnia [None]
  - Drug tolerance [None]
  - Sleep apnoea syndrome [None]

NARRATIVE: CASE EVENT DATE: 201210
